FAERS Safety Report 7413064 (Version 4)
Quarter: 2018Q3

REPORT INFORMATION
  Report Type: Report from Study
  Country: JP (occurrence: JP)
  Receive Date: 20100608
  Receipt Date: 20180829
  Transmission Date: 20181010
  Serious: Yes (Life-Threatening, Hospitalization, Other)
  Sender: FDA-Public Use
  Company Number: PHHY2008JP32372

PATIENT
  Age: 72 Year
  Sex: Female
  Weight: 45 kg

DRUGS (11)
  1. PREDONINE [Concomitant]
     Active Substance: PREDNISOLONE
     Indication: APLASTIC ANAEMIA
     Dosage: 10 MG, QD
     Route: 048
     Dates: start: 20080928
  2. EXJADE [Suspect]
     Active Substance: DEFERASIROX
     Indication: IRON OVERLOAD
     Dosage: 500 MG, QD
     Route: 048
     Dates: start: 20080728, end: 20080817
  3. OMEPRAL [Concomitant]
     Active Substance: OMEPRAZOLE
     Indication: PAROXYSMAL NOCTURNAL HAEMOGLOBINURIA
     Dosage: 20 MG, UNK
     Route: 048
     Dates: start: 20080728, end: 20081119
  4. EXJADE [Suspect]
     Active Substance: DEFERASIROX
     Dosage: 1000 MG, QD
     Route: 048
     Dates: start: 20080818, end: 20081119
  5. MAALOX ANTACID [Concomitant]
     Active Substance: ALUMINUM HYDROXIDE\DIMETHICONE\MAGNESIUM HYDROXIDE
     Indication: PAROXYSMAL NOCTURNAL HAEMOGLOBINURIA
     Dosage: 3 DF, UNK
     Route: 048
     Dates: start: 20080728, end: 20081119
  6. PREDONINE [Concomitant]
     Active Substance: PREDNISOLONE
     Dosage: 5 MG, UNK
     Route: 048
  7. PREDONINE [Concomitant]
     Active Substance: PREDNISOLONE
     Dosage: 7.5 MG, QD
     Route: 048
     Dates: start: 20081209, end: 20081215
  8. FOLIAMIN [Concomitant]
     Active Substance: FOLIC ACID
     Indication: APLASTIC ANAEMIA
     Dosage: 5 MG, UNK
     Route: 048
     Dates: start: 20080728, end: 20081119
  9. PRIMOBOLAN?DEPOT [Concomitant]
     Active Substance: METHENOLONE ENANTHATE
     Indication: APLASTIC ANAEMIA
     Dosage: 10 MG, UNK
     Route: 048
     Dates: start: 20080728, end: 20081119
  10. PREDONINE [Concomitant]
     Active Substance: PREDNISOLONE
     Dosage: 5 MG, UNK
     Route: 048
  11. PREDONINE [Concomitant]
     Active Substance: PREDNISOLONE
     Dosage: 10 MG, UNK
     Route: 048
     Dates: start: 20081128, end: 20081208

REACTIONS (18)
  - Platelet count decreased [Unknown]
  - Rash generalised [Recovering/Resolving]
  - Blood urea increased [Recovered/Resolved]
  - Adenocarcinoma [Unknown]
  - Duodenal ulcer haemorrhage [Recovering/Resolving]
  - Haemoglobin decreased [Unknown]
  - White blood cell count increased [Recovered/Resolved]
  - Chronic gastritis [Recovering/Resolving]
  - Decreased appetite [Recovered/Resolved]
  - Myositis [Recovered/Resolved]
  - Alanine aminotransferase increased [Recovered/Resolved]
  - Purpura [Unknown]
  - Pain in extremity [Unknown]
  - Aspartate aminotransferase increased [Recovered/Resolved]
  - Erosive duodenitis [Unknown]
  - Gastric mucosa erythema [Unknown]
  - Blood creatinine increased [Recovered/Resolved]
  - Body temperature increased [Unknown]

NARRATIVE: CASE EVENT DATE: 20080929
